FAERS Safety Report 4704945-4 (Version None)
Quarter: 2005Q3

REPORT INFORMATION
  Report Type: 
  Country: None (occurrence: None)
  Receive Date: 20050701
  Receipt Date: 20050614
  Transmission Date: 20060218
  Serious: Yes (Hospitalization)
  Sender: FDA-Public Use
  Company Number: US-BOEHRINGER INGELHEIM PHARMACEUTICALS, INC.-2005-BP-10040BP

PATIENT
  Sex: Male

DRUGS (4)
  1. FLOMAX [Suspect]
     Indication: SURGERY
     Route: 048
     Dates: start: 20050601
  2. WELLBUTRIN [Concomitant]
     Route: 048
  3. CELEBREX [Concomitant]
     Route: 048
  4. NADOLOL [Concomitant]

REACTIONS (6)
  - AMNESIA [None]
  - ANAESTHETIC COMPLICATION [None]
  - BACK PAIN [None]
  - DYSSTASIA [None]
  - FEELING ABNORMAL [None]
  - PARALYSIS [None]
